FAERS Safety Report 17941649 (Version 2)
Quarter: 2020Q4

REPORT INFORMATION
  Report Type: Report from Study
  Country: US (occurrence: US)
  Receive Date: 20200625
  Receipt Date: 20201210
  Transmission Date: 20210113
  Serious: Yes (Other)
  Sender: FDA-Public Use
  Company Number: US-SA-2020SA159179

PATIENT

DRUGS (1)
  1. AGALSIDASE BETA [Suspect]
     Active Substance: AGALSIDASE BETA
     Indication: FABRY^S DISEASE
     Dosage: 70 MG, QOW
     Route: 042
     Dates: start: 20190506

REACTIONS (5)
  - Renal impairment [Not Recovered/Not Resolved]
  - Neutralising antibodies positive [Unknown]
  - Drug specific antibody present [Unknown]
  - Drug specific antibody absent [Unknown]
  - Globotriaosylceramide increased [Unknown]

NARRATIVE: CASE EVENT DATE: 20200528
